FAERS Safety Report 7514253-4 (Version None)
Quarter: 2011Q2

REPORT INFORMATION
  Report Type: 
  Country: None (occurrence: None)
  Receive Date: 20110601
  Receipt Date: 20110517
  Transmission Date: 20111010
  Serious: Yes (Hospitalization, Other)
  Sender: FDA-Public Use
  Company Number: DE-AMGEN-DEUSP2011026838

PATIENT
  Age: 69 Year
  Sex: Female

DRUGS (2)
  1. ENBREL [Suspect]
     Indication: PRODUCT USED FOR UNKNOWN INDICATION
     Dosage: 25 MG, WEEKLY
     Dates: start: 20000101
  2. ANAFRANIL [Suspect]
     Indication: DEPRESSION
     Dosage: 75 MG, UNK
     Dates: start: 20070101

REACTIONS (9)
  - OSTEOPOROSIS [None]
  - DEPRESSION [None]
  - SKIN PAPILLOMA [None]
  - BLOOD PRESSURE DECREASED [None]
  - STRESS [None]
  - BRONCHITIS [None]
  - PULMONARY FIBROSIS [None]
  - PNEUMONIA [None]
  - FALL [None]
